FAERS Safety Report 7373738-4 (Version None)
Quarter: 2011Q1

REPORT INFORMATION
  Report Type: 
  Country: None (occurrence: None)
  Receive Date: 20110325
  Receipt Date: 20110315
  Transmission Date: 20110831
  Serious: Yes (Hospitalization)
  Sender: FDA-Public Use
  Company Number: US-JNJFOC-20110307286

PATIENT
  Sex: Female
  Weight: 72.58 kg

DRUGS (2)
  1. DURAGESIC-50 [Suspect]
     Indication: PAIN
     Dosage: 100UG/HR
     Route: 062
  2. DURAGESIC-50 [Suspect]
     Indication: PRODUCT USED FOR UNKNOWN INDICATION
     Dosage: 100UG/HR
     Route: 062

REACTIONS (4)
  - VOCAL CORD NEOPLASM [None]
  - LARYNGEAL CANCER [None]
  - THROAT CANCER [None]
  - ABNORMAL LOSS OF WEIGHT [None]
